FAERS Safety Report 11126611 (Version 1)
Quarter: 2015Q2

REPORT INFORMATION
  Report Type: Report from Study
  Country: DE (occurrence: DE)
  Receive Date: 20150520
  Receipt Date: 20150520
  Transmission Date: 20150821
  Serious: Yes (Hospitalization)
  Sender: FDA-Public Use
  Company Number: DE-SA-2015SA065328

PATIENT
  Age: 70 Year
  Sex: Female

DRUGS (12)
  1. FOLSAURE [Concomitant]
     Active Substance: FOLIC ACID
     Dosage: 2ND CYCLE
     Dates: start: 20150504, end: 20150504
  2. 5-FU [Suspect]
     Active Substance: FLUOROURACIL
     Indication: CHEMOTHERAPY
     Route: 065
     Dates: start: 20150504, end: 20150504
  3. NOVALGIN [Concomitant]
     Active Substance: METAMIZOLE SODIUM
  4. DOCETAXEL. [Suspect]
     Active Substance: DOCETAXEL
     Indication: CHEMOTHERAPY
     Route: 065
  5. L-THYROXIN [Concomitant]
     Active Substance: LEVOTHYROXINE SODIUM
  6. HYDROCHLOROTHIAZIDE. [Concomitant]
     Active Substance: HYDROCHLOROTHIAZIDE
  7. OXALIPLATIN. [Suspect]
     Active Substance: OXALIPLATIN
     Indication: CHEMOTHERAPY
     Route: 042
     Dates: start: 20150504, end: 20150504
  8. OXALIPLATIN. [Suspect]
     Active Substance: OXALIPLATIN
     Indication: CHEMOTHERAPY
     Route: 065
  9. 5-FU [Suspect]
     Active Substance: FLUOROURACIL
     Indication: CHEMOTHERAPY
     Route: 065
  10. ASPIRIN. [Concomitant]
     Active Substance: ASPIRIN
     Dates: start: 20150327
  11. DOCETAXEL. [Suspect]
     Active Substance: DOCETAXEL
     Indication: CHEMOTHERAPY
     Route: 042
     Dates: start: 20150504, end: 20150504
  12. SAB SIMPLEX [Concomitant]

REACTIONS (5)
  - Nausea [Recovered/Resolved]
  - General physical health deterioration [Recovered/Resolved]
  - Malaise [Recovered/Resolved]
  - Hypokalaemia [Recovered/Resolved]
  - Abdominal pain upper [Recovered/Resolved]

NARRATIVE: CASE EVENT DATE: 20150505
